FAERS Safety Report 9058676 (Version 2)
Quarter: 2013Q2

REPORT INFORMATION
  Report Type: Spontaneous
  Country: BR (occurrence: BR)
  Receive Date: 20130204
  Receipt Date: 20130410
  Transmission Date: 20140414
  Serious: Yes (Hospitalization, Other)
  Sender: FDA-Public Use
  Company Number: BR-JNJFOC-20130114354

PATIENT
  Age: 21 Year
  Sex: Female

DRUGS (2)
  1. REMICADE [Suspect]
     Indication: COLITIS ULCERATIVE
     Dosage: 2ND INFUSION
     Route: 042
     Dates: start: 20130116
  2. REMICADE [Suspect]
     Indication: COLITIS ULCERATIVE
     Route: 042

REACTIONS (4)
  - Hypothermia [Not Recovered/Not Resolved]
  - Anaemia [Not Recovered/Not Resolved]
  - Infusion related reaction [Unknown]
  - Tremor [Unknown]
